FAERS Safety Report 7127966-3 (Version None)
Quarter: 2010Q4

REPORT INFORMATION
  Report Type: 
  Country: None (occurrence: None)
  Receive Date: 20101112
  Receipt Date: 20101101
  Transmission Date: 20110411
  Serious: Yes (Other)
  Sender: FDA-Public Use
  Company Number: 108018

PATIENT
  Sex: Male

DRUGS (1)
  1. OCTREOTIDE ACETATE [Suspect]
     Dosage: EPIDURAL (IN ERROR)
     Dates: start: 20101029

REACTIONS (1)
  - INCORRECT ROUTE OF DRUG ADMINISTRATION [None]
